FAERS Safety Report 19934999 (Version 2)
Quarter: 2021Q4

REPORT INFORMATION
  Report Type: Spontaneous
  Country: US (occurrence: None)
  Receive Date: 20211008
  Receipt Date: 20211105
  Transmission Date: 20220303
  Serious: No
  Sender: FDA-Public Use
  Company Number: 2021A719384

PATIENT
  Sex: Male
  Weight: 97.1 kg

DRUGS (5)
  1. BYDUREON BCISE [Suspect]
     Active Substance: EXENATIDE
     Indication: Diabetes mellitus
     Route: 058
     Dates: start: 202011
  2. BYDUREON [Suspect]
     Active Substance: EXENATIDE
     Indication: Diabetes mellitus
     Route: 058
     Dates: end: 202011
  3. GLIPIZIDE [Concomitant]
     Active Substance: GLIPIZIDE
  4. METFORMIN [Concomitant]
     Active Substance: METFORMIN HYDROCHLORIDE
  5. SYNHARDY [Concomitant]

REACTIONS (5)
  - Glycosylated haemoglobin increased [Recovering/Resolving]
  - Abdominal discomfort [Recovered/Resolved]
  - Injection site haemorrhage [Unknown]
  - Weight decreased [Unknown]
  - Device delivery system issue [Unknown]
